FAERS Safety Report 9000641 (Version 1)
Quarter: 2012Q4

REPORT INFORMATION
  Report Type: Spontaneous
  Country: JP (occurrence: None)
  Receive Date: 20121226
  Receipt Date: 20121226
  Transmission Date: 20130627
  Serious: Yes (Hospitalization)
  Sender: FDA-Public Use
  Company Number: TCI2012A07232

PATIENT
  Age: 88 Year
  Sex: Male

DRUGS (5)
  1. ROZEREM TABLETS 8MG (RAMELTEON) [Suspect]
     Indication: INSOMNIA
     Dosage: (8 mg, 1 in 1 D)
     Route: 048
     Dates: start: 20110719, end: 20120131
  2. TAKEPRON (LANSOPRAZOLE) [Concomitant]
  3. EXFORGE (AMLODIPINE BESILATE, VALSARTAN) [Concomitant]
  4. WARARIN (WARFARIN POTASSIUM) [Concomitant]
  5. ALDACTONE-A (SPIRONOLACTONE) [Concomitant]

REACTIONS (2)
  - Fall [None]
  - Back injury [None]
